FAERS Safety Report 10211449 (Version 1)
Quarter: 2014Q2

REPORT INFORMATION
  Report Type: Spontaneous
  Country: US (occurrence: US)
  Receive Date: 20140602
  Receipt Date: 20140602
  Transmission Date: 20141212
  Serious: Yes (Other)
  Sender: FDA-Public Use
  Company Number: US-BAXTER-2014BAX026854

PATIENT
  Age: 10 Year
  Sex: Female

DRUGS (2)
  1. CYCLOPHOSPHAMIDE FOR INJECTION, USP [Suspect]
     Indication: APLASTIC ANAEMIA
     Route: 065
  2. RABBIT ANTI-THYMOCYTE GLOBULIN [Suspect]
     Indication: APLASTIC ANAEMIA
     Route: 065

REACTIONS (3)
  - Escherichia bacteraemia [Unknown]
  - Aplasia pure red cell [Recovered/Resolved]
  - Post procedural complication [None]
